FAERS Safety Report 19596932 (Version 2)
Quarter: 2021Q3

REPORT INFORMATION
  Report Type: Report from Study
  Country: DO (occurrence: DO)
  Receive Date: 20210722
  Receipt Date: 20210902
  Transmission Date: 20211014
  Serious: Yes (Hospitalization, Other)
  Sender: FDA-Public Use
  Company Number: NVSC2021DO150434

PATIENT
  Age: 43 Year
  Sex: Female
  Weight: 64.85 kg

DRUGS (8)
  1. XOLAIR [Suspect]
     Active Substance: OMALIZUMAB
     Indication: ASTHMA
     Dosage: 300 MG, QMO
     Route: 058
     Dates: start: 20210617
  2. MONTELUKAST [Suspect]
     Active Substance: MONTELUKAST SODIUM
     Indication: ASTHMATIC CRISIS
     Dosage: 1 DF, QD (1 DAILY TABLET AT 9 O^CLOCK IN THE EVENING.)
     Route: 065
  3. PREDNISONE. [Concomitant]
     Active Substance: PREDNISONE
     Indication: NASAL CONGESTION
     Dosage: UNK (ONE DAILY FOR A MONTH)
     Route: 065
  4. ALBUTEROL. [Concomitant]
     Active Substance: ALBUTEROL
     Indication: ASTHMATIC CRISIS
     Dosage: 1 DF, BID (EVERY 6 TO 8 HOURS)
     Route: 055
  5. XOLAIR [Suspect]
     Active Substance: OMALIZUMAB
     Dosage: UNK
     Route: 065
     Dates: start: 20210618
  6. PREDNISONE. [Concomitant]
     Active Substance: PREDNISONE
     Indication: HEADACHE
  7. IRBESARTAN. [Suspect]
     Active Substance: IRBESARTAN
     Indication: PRODUCT USED FOR UNKNOWN INDICATION
     Dosage: 1 DF, QD
     Route: 065
  8. INSULIN [Concomitant]
     Active Substance: INSULIN NOS
     Indication: PRODUCT USED FOR UNKNOWN INDICATION
     Dosage: UNK UNK, BID (70/30) (2 HOURS AFTER BREAKFAST AND 2 HOURS AFTER DINNER)
     Route: 065

REACTIONS (9)
  - Cough [Unknown]
  - Nasal congestion [Unknown]
  - Asthmatic crisis [Unknown]
  - Headache [Unknown]
  - Anosmia [Unknown]
  - Asphyxia [Unknown]
  - Asthenia [Unknown]
  - COVID-19 pneumonia [Recovered/Resolved]
  - Inappropriate schedule of product administration [Unknown]

NARRATIVE: CASE EVENT DATE: 20210618
